FAERS Safety Report 10020675 (Version 1)
Quarter: 2014Q1

REPORT INFORMATION
  Report Type: Spontaneous
  Country: US (occurrence: US)
  Receive Date: 20140319
  Receipt Date: 20140319
  Transmission Date: 20141002
  Serious: Yes (Other)
  Sender: FDA-Public Use
  Company Number: US-AMGEN-USASP2014018320

PATIENT
  Sex: 0

DRUGS (2)
  1. SENSIPAR [Suspect]
     Indication: PRODUCT USED FOR UNKNOWN INDICATION
     Dosage: 60 MG, QD
     Route: 065
  2. VITAMIN D                          /00107901/ [Concomitant]
     Route: 065

REACTIONS (2)
  - Blood parathyroid hormone abnormal [Unknown]
  - Blood calcium abnormal [Unknown]
